FAERS Safety Report 18881522 (Version 1)
Quarter: 2021Q1

REPORT INFORMATION
  Report Type: Report from Study
  Country: DE (occurrence: DE)
  Receive Date: 20210212
  Receipt Date: 20210212
  Transmission Date: 20210420
  Serious: Yes (Other)
  Sender: FDA-Public Use
  Company Number: DE-SUN PHARMACEUTICAL INDUSTRIES LTD-2021R1-279322

PATIENT
  Sex: Female

DRUGS (14)
  1. CIPROFLOXACIN. [Concomitant]
     Active Substance: CIPROFLOXACIN
     Indication: BACTERIAL INFECTION
     Dosage: UNK
     Route: 065
  2. METRONIDAZOLE. [Concomitant]
     Active Substance: METRONIDAZOLE
     Indication: BACTERIAL INFECTION
  3. PARACETAMOL [Suspect]
     Active Substance: ACETAMINOPHEN
     Indication: BODY TEMPERATURE
     Dosage: UNK
     Route: 065
  4. AMOXICILLIN. [Concomitant]
     Active Substance: AMOXICILLIN
     Indication: CLOSTRIDIUM DIFFICILE COLITIS
  5. CLAVULANIC ACID [Concomitant]
     Active Substance: CLAVULANIC ACID
     Indication: CLOSTRIDIUM DIFFICILE COLITIS
     Dosage: UNK
     Route: 065
  6. AMOXICILLIN. [Concomitant]
     Active Substance: AMOXICILLIN
     Indication: BACTERIAL INFECTION
     Dosage: UNK
     Route: 065
  7. CERTOLIZUMAB [Concomitant]
     Active Substance: CERTOLIZUMAB
     Indication: CROHN^S DISEASE
     Dosage: UNK
     Route: 065
  8. INFLIXIMAB [Concomitant]
     Active Substance: INFLIXIMAB
     Indication: CROHN^S DISEASE
     Dosage: UNK
     Route: 065
  9. CIPROFLOXACIN. [Concomitant]
     Active Substance: CIPROFLOXACIN
     Indication: CLOSTRIDIUM DIFFICILE COLITIS
  10. VANCOMYCIN [Concomitant]
     Active Substance: VANCOMYCIN
     Indication: CLOSTRIDIUM DIFFICILE COLITIS
     Dosage: UNK
     Route: 065
  11. VANCOMYCIN [Concomitant]
     Active Substance: VANCOMYCIN
     Indication: BACTERIAL INFECTION
  12. CLAVULANIC ACID [Concomitant]
     Active Substance: CLAVULANIC ACID
     Indication: BACTERIAL INFECTION
  13. METRONIDAZOLE. [Concomitant]
     Active Substance: METRONIDAZOLE
     Indication: CLOSTRIDIUM DIFFICILE COLITIS
     Dosage: UNK
     Route: 065
  14. PREDNISONE. [Concomitant]
     Active Substance: PREDNISONE
     Indication: CROHN^S DISEASE
     Dosage: UNK
     Route: 065

REACTIONS (2)
  - Exposure during pregnancy [Unknown]
  - Stillbirth [Unknown]
